FAERS Safety Report 25494716 (Version 2)
Quarter: 2025Q3

REPORT INFORMATION
  Report Type: Spontaneous
  Country: US (occurrence: US)
  Receive Date: 20250630
  Receipt Date: 20250716
  Transmission Date: 20251021
  Serious: No
  Sender: ORGANON
  Company Number: US-ORGANON-O2506USA002529

PATIENT
  Sex: Female
  Weight: 105.67 kg

DRUGS (1)
  1. NEXPLANON [Suspect]
     Active Substance: ETONOGESTREL
     Route: 023
     Dates: start: 2022

REACTIONS (2)
  - Malaise [Unknown]
  - Incorrect route of product administration [Unknown]

NARRATIVE: CASE EVENT DATE: 20220101
